FAERS Safety Report 26065300 (Version 1)
Quarter: 2025Q4

REPORT INFORMATION
  Report Type: Spontaneous
  Country: US (occurrence: None)
  Receive Date: 20251119
  Receipt Date: 20251119
  Transmission Date: 20260118
  Serious: Yes (Disabling, Other)
  Sender: FDA-CTU
  Company Number: None

PATIENT
  Age: 38 Year
  Sex: Female
  Weight: 63 kg

DRUGS (4)
  1. WEGOVY [Suspect]
     Active Substance: SEMAGLUTIDE
     Indication: Weight control
     Dosage: OTHER FREQUENCY : PER 2 WEEKS;?
     Route: 058
     Dates: start: 20241219, end: 20251119
  2. VITAMINS [Concomitant]
     Active Substance: VITAMINS
  3. COLLAGEN [Concomitant]
     Active Substance: COLLAGEN
  4. PROTEIN [Concomitant]
     Active Substance: PROTEIN

REACTIONS (2)
  - Cataract [None]
  - Cataract subcapsular [None]

NARRATIVE: CASE EVENT DATE: 20251105
